FAERS Safety Report 17256293 (Version 1)
Quarter: 2020Q1

REPORT INFORMATION
  Report Type: Spontaneous
  Country: US (occurrence: US)
  Receive Date: 20200110
  Receipt Date: 20200110
  Transmission Date: 20200409
  Serious: Yes (Hospitalization, Other)
  Sender: FDA-Public Use
  Company Number: US-AMGEN-USASP2020002571

PATIENT

DRUGS (7)
  1. ETOPOSIDE. [Concomitant]
     Active Substance: ETOPOSIDE
     Indication: LYMPHOMA
     Dosage: 200 MILLIGRAM/SQ. METER, QD (FROM DAY -5 THROUGH DAY -2)
  2. CARMUSTINE. [Concomitant]
     Active Substance: CARMUSTINE
     Indication: LYMPHOMA
     Dosage: 300 MILLIGRAM/SQ. METER (ON DAY -6)
  3. DEXAMETHASONE. [Concomitant]
     Active Substance: DEXAMETHASONE
     Indication: PROPHYLAXIS OF NAUSEA AND VOMITING
     Dosage: 2 MILLIGRAM, BID (DAY 1 TO 7)
     Route: 048
  4. PEGFILGRASTIM [Suspect]
     Active Substance: PEGFILGRASTIM
     Indication: PRODUCT USED FOR UNKNOWN INDICATION
     Dosage: UNK, AFTER CHEMO
     Route: 065
  5. CYTARABINE. [Concomitant]
     Active Substance: CYTARABINE
     Indication: LYMPHOMA
     Dosage: 400 MILLIGRAM/SQ. METER, QD (FROM DAY -5 THROUGH DAY -2 )
  6. MELPHALAN. [Concomitant]
     Active Substance: MELPHALAN
     Indication: LYMPHOMA
     Dosage: 140 MILLIGRAM/SQ. METER (ON DAY -1)
  7. LORAZEPAM. [Concomitant]
     Active Substance: LORAZEPAM
     Indication: PROPHYLAXIS OF NAUSEA AND VOMITING
     Dosage: 0.5 MILLIGRAM, TID (DAY 1 TO 7)

REACTIONS (10)
  - Febrile neutropenia [Unknown]
  - Weight decreased [Unknown]
  - Diarrhoea [Unknown]
  - Hypoxia [Unknown]
  - Engraftment syndrome [Unknown]
  - Platelet count decreased [Unknown]
  - Tachycardia [Unknown]
  - Nausea [Unknown]
  - Haemoglobin decreased [Unknown]
  - Unevaluable event [Unknown]
